FAERS Safety Report 20727717 (Version 1)
Quarter: 2022Q2

REPORT INFORMATION
  Report Type: Spontaneous
  Country: US (occurrence: None)
  Receive Date: 20220419
  Receipt Date: 20220419
  Transmission Date: 20220721
  Serious: No
  Sender: FDA-Public Use
  Company Number: US-ROCHE-3023298

PATIENT

DRUGS (2)
  1. AVASTIN [Suspect]
     Active Substance: BEVACIZUMAB
     Indication: Colorectal cancer metastatic
     Dosage: 5 MG/KG, EVERY 2 WEEKS FOR 2 MONTHS ;ONGOING: UNKNOWN
     Route: 065
     Dates: start: 20220207
  2. FLUOROURACIL\IRINOTECAN\LEUCOVORIN\OXALIPLATIN [Concomitant]
     Active Substance: FLUOROURACIL\IRINOTECAN\LEUCOVORIN\OXALIPLATIN
     Indication: Colorectal cancer metastatic
     Dosage: EVERY 2 WEEKS FOR 2 MONTHS ;ONGOING: UNKNOWN
     Dates: start: 20220207

REACTIONS (2)
  - Pain in jaw [Unknown]
  - Temperature intolerance [Unknown]
